FAERS Safety Report 8788706 (Version 3)
Quarter: 2013Q2

REPORT INFORMATION
  Report Type: Report from Study
  Country: JP (occurrence: JP)
  Receive Date: 20120917
  Receipt Date: 20130415
  Transmission Date: 20140414
  Serious: Yes (Other)
  Sender: FDA-Public Use
  Company Number: JP-009507513-1209JPN001938

PATIENT
  Age: 65 Year
  Sex: Male
  Weight: 68 kg

DRUGS (17)
  1. PEGINTRON [Suspect]
     Indication: CHRONIC HEPATITIS C
     Dosage: 1.5 MICROGRAM PER KILOGRAM, QW
     Route: 058
     Dates: start: 20120522, end: 20120626
  2. PEGINTRON [Suspect]
     Dosage: 1.5 MICROGRAM PER KILOGRAM, QW
     Route: 058
     Dates: start: 20120717, end: 20120731
  3. PEGINTRON [Suspect]
     Dosage: 1.5 MICROGRAM PER KILOGRAM, QW
     Route: 058
     Dates: start: 20120807, end: 20120821
  4. REBETOL [Suspect]
     Indication: CHRONIC HEPATITIS C
     Dosage: 800 MG, QD
     Route: 048
     Dates: start: 20120522, end: 20120626
  5. REBETOL [Suspect]
     Dosage: 400MG,QD
     Route: 048
     Dates: start: 20120717, end: 20120731
  6. REBETOL [Suspect]
     Dosage: 200MG, QD
     Route: 048
     Dates: start: 20120807, end: 20120821
  7. REBETOL [Suspect]
     Dosage: 200MG, QD
     Route: 048
     Dates: start: 20120911, end: 20121103
  8. REBETOL [Suspect]
     Dosage: 200MG, QD
     Route: 048
     Dates: start: 20121106, end: 20121110
  9. TELAVIC [Suspect]
     Indication: CHRONIC HEPATITIS C
     Dosage: 2250 MG, QD, CUMULATIVE DOSE 4500 MG
     Route: 048
     Dates: start: 20120522, end: 20120626
  10. TELAVIC [Suspect]
     Dosage: 2250 MG,QD, CUMULATIVE 4500 MG
     Route: 048
     Dates: start: 20120717, end: 20120731
  11. TELAVIC [Suspect]
     Dosage: 2250 MG, QD, CUMULATIVE DOSE 4500 MG
     Route: 048
     Dates: start: 20120807, end: 20120821
  12. TELAVIC [Suspect]
     Dosage: 1500 MG, QD, CUMULATIVE DOSE 4500 MG
     Route: 048
     Dates: start: 20120911, end: 20121103
  13. TELAVIC [Suspect]
     Dosage: 1500 MG, QD, CUMULATIVE DOSE 4500 MG
     Route: 048
     Dates: start: 20121106, end: 20121110
  14. URSO [Concomitant]
     Indication: CHRONIC HEPATITIS C
     Dosage: 900 MG, QD, POR
     Route: 048
  15. BLOPRESS [Concomitant]
     Indication: HYPERTENSION
     Dosage: 8 MG, QD, POR
     Route: 048
  16. NORVASC [Concomitant]
     Indication: DYSLIPIDAEMIA
     Dosage: 5 MG, QD, POR
     Route: 048
  17. HORMONES (THYROID AND PARA-THYROID HORMONE PREPARATIONS) [Concomitant]
     Indication: HYPOTHYROIDISM
     Dosage: 50 MICROGRAM, QD, POR
     Route: 048

REACTIONS (1)
  - Blood creatinine increased [Recovering/Resolving]
